FAERS Safety Report 7429189-7 (Version None)
Quarter: 2011Q2

REPORT INFORMATION
  Report Type: 
  Country: None (occurrence: None)
  Receive Date: 20110421
  Receipt Date: 20110418
  Transmission Date: 20111010
  Serious: Yes (Other)
  Sender: FDA-Public Use
  Company Number: HR-ROCHE-772204

PATIENT
  Age: 19 Year
  Sex: Female
  Weight: 60 kg

DRUGS (2)
  1. DIANE [Concomitant]
     Indication: CHEMICAL CONTRACEPTION
     Route: 048
  2. ACCUTANE [Suspect]
     Indication: ACNE
     Route: 048
     Dates: start: 20101101

REACTIONS (3)
  - COUGH [None]
  - PHARYNGEAL OEDEMA [None]
  - PHARYNGEAL ERYTHEMA [None]
